FAERS Safety Report 4673914-5 (Version None)
Quarter: 2005Q2

REPORT INFORMATION
  Report Type: 
  Country: None (occurrence: None)
  Receive Date: 20050525
  Receipt Date: 20050421
  Transmission Date: 20051028
  Serious: Yes (Life-Threatening, Hospitalization)
  Sender: FDA-Public Use
  Company Number: US-MERCK-0504USA04013

PATIENT
  Age: 67 Year
  Sex: Female

DRUGS (12)
  1. VIOXX [Suspect]
     Indication: OSTEOARTHRITIS
     Route: 048
     Dates: start: 19990101, end: 20020424
  2. ASPIRIN [Concomitant]
     Route: 065
  3. PRILOSEC [Concomitant]
     Route: 048
  4. WELLBUTRIN SR [Concomitant]
     Route: 048
  5. ANTIVERT [Concomitant]
     Route: 048
  6. CLARITIN [Concomitant]
     Route: 048
  7. SYNTHROID [Concomitant]
     Route: 048
  8. DESYREL [Concomitant]
     Route: 048
  9. ULTRAM [Concomitant]
     Route: 048
  10. OXYCONTIN [Concomitant]
     Route: 048
  11. ZOCOR [Concomitant]
     Route: 048
  12. DARVOCET-N 100 [Concomitant]
     Route: 048

REACTIONS (3)
  - CAROTID BRUIT [None]
  - CEREBROVASCULAR ACCIDENT [None]
  - TRANSIENT ISCHAEMIC ATTACK [None]
